FAERS Safety Report 4470488-9 (Version None)
Quarter: 2004Q4

REPORT INFORMATION
  Report Type: 
  Country: None (occurrence: None)
  Receive Date: 20041001
  Receipt Date: 20040913
  Transmission Date: 20050328
  Serious: Yes (Death)
  Sender: FDA-Public Use
  Company Number: 8861

PATIENT
  Age: 46 Year
  Sex: Female

DRUGS (9)
  1. METHOTREXATE [Suspect]
     Indication: BLADDER CANCER
     Dosage: 45 MG PER_ CYCLE  IV
     Route: 042
     Dates: start: 20030407, end: 20030407
  2. METHOTREXATE [Suspect]
     Indication: BLADDER CANCER
     Dosage: 45 MG PER_ CYCLE  IV
     Route: 042
     Dates: start: 20030506, end: 20030506
  3. METHOTREXATE [Suspect]
     Indication: BLADDER CANCER
     Dosage: 45 MG PER_ CYCLE  IV
     Route: 042
     Dates: start: 20030604, end: 20030604
  4. RANDA [Suspect]
     Indication: BLADDER CANCER
     Dosage: 150  MG PER_ CYCLE  IV
     Route: 042
     Dates: start: 20030407, end: 20030407
  5. RANDA [Suspect]
     Indication: BLADDER CANCER
     Dosage: 150 MG PER_ CYCLE   IV
     Route: 042
     Dates: start: 20030506, end: 20030506
  6. RANDA [Suspect]
     Indication: BLADDER CANCER
     Dosage: 150 MG PER_ CYCLE  IV
     Route: 042
     Dates: start: 20030604, end: 20030604
  7. PINORUBIN [Suspect]
     Indication: BLADDER CANCER
     Dosage: 75  MG PER_ CYCLE  IV
     Route: 042
     Dates: start: 20030407, end: 20030407
  8. PINORUBIN [Suspect]
     Indication: BLADDER CANCER
     Dosage: 75  MG PER_ CYCLE  IV
     Route: 042
     Dates: start: 20030506, end: 20030506
  9. PINORUBIN [Suspect]
     Indication: BLADDER CANCER
     Dosage: 75  MG PER_ CYCLE  IV
     Route: 042
     Dates: start: 20030604, end: 20030604

REACTIONS (4)
  - CATHETER SITE HAEMORRHAGE [None]
  - CONDITION AGGRAVATED [None]
  - HEPATITIS B [None]
  - HEPATITIS FULMINANT [None]
